FAERS Safety Report 5631472-2 (Version None)
Quarter: 2008Q1

REPORT INFORMATION
  Report Type: 
  Country: None (occurrence: None)
  Receive Date: 20080215
  Receipt Date: 20080205
  Transmission Date: 20080703
  Serious: Yes (Hospitalization, Other)
  Sender: FDA-Public Use
  Company Number: 231329J08USA

PATIENT
  Age: 37 Year
  Sex: Female

DRUGS (7)
  1. REBIF [Suspect]
     Indication: MULTIPLE SCLEROSIS
     Dosage: 44 MCG, 3 IN 1 WEEKS, SUBCUTANEOUS
     Route: 058
     Dates: start: 20051014
  2. TOPAMAX [Concomitant]
  3. LEVOXYL [Concomitant]
  4. PROVIGIL [Concomitant]
  5. BUPROPION HCL [Concomitant]
  6. FOLBEE (ALL OTHER THERAPEUTIC PRODUCTS) [Concomitant]
  7. MAG-OX (MAGNESIUM OXIDE) [Concomitant]

REACTIONS (2)
  - DISEASE PROGRESSION [None]
  - OSTEOARTHRITIS [None]
